FAERS Safety Report 9937838 (Version 1)
Quarter: 2014Q1

REPORT INFORMATION
  Report Type: Spontaneous
  Country: US (occurrence: US)
  Receive Date: 20140303
  Receipt Date: 20140303
  Transmission Date: 20141002
  Serious: No
  Sender: FDA-Public Use
  Company Number: US-BIOGENIDEC-2014BI016358

PATIENT
  Age: 48 Year
  Sex: Female

DRUGS (14)
  1. TECFIDERA [Suspect]
     Indication: MULTIPLE SCLEROSIS
     Route: 048
     Dates: start: 20130810
  2. BACLOFEN [Concomitant]
  3. BIOTIN [Concomitant]
  4. CALCIUM [Concomitant]
  5. COQ 10 [Concomitant]
  6. FLAX SEED [Concomitant]
  7. GELNIQUE [Concomitant]
  8. GLUCOSAMINE/ CHONDROITIN [Concomitant]
  9. NUVIGIL [Concomitant]
  10. NEURONTIN [Concomitant]
  11. OXYBUTYNIN [Concomitant]
  12. ULTRAM [Concomitant]
  13. VICODIN [Concomitant]
  14. RIFAMPIN [Concomitant]
     Indication: PROPHYLAXIS

REACTIONS (3)
  - Exposure to communicable disease [Unknown]
  - Fatigue [Unknown]
  - Bursitis [Unknown]
